FAERS Safety Report 7363227-5 (Version None)
Quarter: 2011Q1

REPORT INFORMATION
  Report Type: 
  Country: None (occurrence: None)
  Receive Date: 20110321
  Receipt Date: 20110311
  Transmission Date: 20110831
  Serious: Yes (Other)
  Sender: FDA-Public Use
  Company Number: JP-ASTELLAS-2011JP001828

PATIENT
  Age: 7 Year
  Sex: Male

DRUGS (7)
  1. PROGRAF [Suspect]
     Indication: PROPHYLAXIS AGAINST GRAFT VERSUS HOST DISEASE
     Dosage: UNK
     Route: 065
  2. METHOTREXATE [Concomitant]
     Indication: PROPHYLAXIS AGAINST GRAFT VERSUS HOST DISEASE
     Route: 065
  3. STEROID [Concomitant]
     Route: 065
  4. FLUDARA [Concomitant]
     Indication: BONE MARROW CONDITIONING REGIMEN
     Route: 065
  5. STEROID [Concomitant]
     Indication: ACUTE GRAFT VERSUS HOST DISEASE IN SKIN
     Route: 065
  6. ANTI-THYMOCYTE GLOBULIN NOS [Concomitant]
     Indication: BONE MARROW CONDITIONING REGIMEN
     Dosage: 2.5 MG, UNKNOWN/D
     Route: 065
  7. CYCLOPHOSPHAMIDE [Concomitant]
     Indication: BONE MARROW CONDITIONING REGIMEN
     Route: 065

REACTIONS (3)
  - ACUTE GRAFT VERSUS HOST DISEASE IN SKIN [None]
  - ANGIOCENTRIC LYMPHOMA [None]
  - DRUG INEFFECTIVE [None]
